FAERS Safety Report 23780273 (Version 1)
Quarter: 2024Q2

REPORT INFORMATION
  Report Type: Spontaneous
  Country: CA (occurrence: CA)
  Receive Date: 20240424
  Receipt Date: 20240424
  Transmission Date: 20240717
  Serious: Yes (Hospitalization)
  Sender: FDA-Public Use
  Company Number: CA-HLS-202400939

PATIENT
  Age: 26 Year
  Sex: Male
  Weight: 85 kg

DRUGS (13)
  1. ATROPINE OPHTHALMIC [Concomitant]
     Dosage: NOT SPECIFIED DOSAGE FORM
     Route: 065
  2. UNSPECIFIED INGREDIENT [Concomitant]
     Active Substance: UNSPECIFIED INGREDIENT
     Dosage: NOT SPECIFIED DOSAGE FORM
     Route: 065
  3. CLOMIPRAMINE [Concomitant]
     Active Substance: CLOMIPRAMINE
     Dosage: NOT SPECIFIED DOSAGE FORM
     Route: 065
  4. CLOZARIL [Suspect]
     Active Substance: CLOZAPINE
     Indication: Schizophrenia
     Dosage: 1 EVERY 1 DAYS?AMOUNT: 375 MILLIGRAM?TABLETS DOSAGE FORM
     Route: 048
  5. CANNABIS SATIVA SEED OIL\HERBALS [Concomitant]
     Active Substance: CANNABIS SATIVA SEED OIL\HERBALS
     Dosage: NOT SPECIFIED DOSAGE FORM
     Route: 065
  6. MAGNESIUM [Concomitant]
     Active Substance: MAGNESIUM
     Dosage: NOT SPECIFIED DOSAGE FORM
     Route: 065
  7. VITAMINS [Concomitant]
     Active Substance: VITAMINS
     Dosage: NOT SPECIFIED DOSAGE FORM
     Route: 065
  8. OMEGA - 3 [Concomitant]
     Dosage: NOT SPECIFIED DOSAGE FORM
     Route: 065
  9. POLYETHYLENE GLYCOL [Concomitant]
     Active Substance: POLYETHYLENE GLYCOL
     Dosage: NOT SPECIFIED DOSAGE FORM
     Route: 065
  10. SENNA [Concomitant]
     Active Substance: SENNA LEAF\SENNOSIDES\SENNOSIDES A AND B
     Dosage: NOT SPECIFIED DOSAGE FORM
     Route: 065
  11. SERTRALINE [Concomitant]
     Active Substance: SERTRALINE HYDROCHLORIDE
     Dosage: CAPSULES DOSAGE FORM
     Route: 065
  12. VITAMIN D [Concomitant]
     Active Substance: VITAMIN D NOS
     Dosage: NOT SPECIFIED DOSAGE FORM
     Route: 065
  13. VITAMIN K [Concomitant]
     Active Substance: PHYTONADIONE
     Dosage: NOT SPECIFIED DOSAGE FORM
     Route: 065

REACTIONS (9)
  - Carditis [Recovering/Resolving]
  - Chest pain [Recovering/Resolving]
  - C-reactive protein increased [Recovering/Resolving]
  - Dizziness [Recovering/Resolving]
  - Dyspnoea [Recovering/Resolving]
  - Headache [Recovering/Resolving]
  - Influenza like illness [Recovering/Resolving]
  - Oedema [Recovering/Resolving]
  - Troponin increased [Recovering/Resolving]
